FAERS Safety Report 5623833-2 (Version None)
Quarter: 2008Q1

REPORT INFORMATION
  Report Type: 
  Country: None (occurrence: None)
  Receive Date: 20080207
  Receipt Date: 20080124
  Transmission Date: 20080703
  Serious: Yes (Hospitalization)
  Sender: FDA-Public Use
  Company Number: FACT0700218

PATIENT
  Age: 38 Year
  Sex: Male
  Weight: 104.3 kg

DRUGS (12)
  1. FACTIVE [Suspect]
     Indication: LOBAR PNEUMONIA
     Dosage: 320 MG,QD; ORAL
     Route: 048
     Dates: start: 20071030, end: 20071101
  2. FLUVAX [Suspect]
     Indication: INFLUENZA IMMUNISATION
     Dosage: 0.5 ML, INTRAMUSCULAR
     Route: 030
     Dates: start: 20071030
  3. CRESTOR [Concomitant]
  4. IMITREX [Concomitant]
  5. LEVAQUIN [Concomitant]
  6. ZITHROMAX [Concomitant]
  7. ALBUTEROL [Concomitant]
  8. SYMBICORT 160-4.5 (BUDESONIDE, FORMOTEROL FUMARATE) [Concomitant]
  9. ROCEPHIN [Concomitant]
  10. TAMIFLU [Concomitant]
  11. CHERATUSSIN DAC (CODEINE, GUAIFENESIN, PSEUDOEPHEDRINE) [Concomitant]
  12. ACETAMINOPHEN [Concomitant]

REACTIONS (23)
  - ALANINE AMINOTRANSFERASE INCREASED [None]
  - ANOREXIA [None]
  - ASTHENIA [None]
  - BLOOD CHLORIDE DECREASED [None]
  - BLOOD GLUCOSE INCREASED [None]
  - DRUG INEFFECTIVE [None]
  - DYSSTASIA [None]
  - FAECAL INCONTINENCE [None]
  - FATIGUE [None]
  - GUILLAIN-BARRE SYNDROME [None]
  - HAEMATOCRIT DECREASED [None]
  - HAEMOGLOBIN DECREASED [None]
  - HEADACHE [None]
  - HYPERHIDROSIS [None]
  - HYPOAESTHESIA [None]
  - MYELITIS TRANSVERSE [None]
  - NAUSEA [None]
  - NEUROPATHY PERIPHERAL [None]
  - PAIN [None]
  - PLATELET COUNT INCREASED [None]
  - SENSORY DISTURBANCE [None]
  - URINARY INCONTINENCE [None]
  - WHITE BLOOD CELL COUNT INCREASED [None]
